FAERS Safety Report 15576772 (Version 1)
Quarter: 2018Q4

REPORT INFORMATION
  Report Type: Spontaneous
  Country: US (occurrence: US)
  Receive Date: 20181101
  Receipt Date: 20181101
  Transmission Date: 20190205
  Serious: No
  Sender: FDA-Public Use
  Company Number: US-JNJFOC-20181025629

PATIENT
  Age: 54 Year
  Sex: Female
  Weight: 77.11 kg

DRUGS (3)
  1. PROZAC [Concomitant]
     Active Substance: FLUOXETINE HYDROCHLORIDE
     Route: 065
  2. MAGNESIUM [Concomitant]
     Active Substance: MAGNESIUM
     Route: 065
  3. TREMFYA [Suspect]
     Active Substance: GUSELKUMAB
     Indication: PSORIASIS
     Route: 058
     Dates: start: 2018

REACTIONS (6)
  - Swelling [Recovered/Resolved]
  - Injection site bruising [Recovered/Resolved]
  - Injection site pruritus [Not Recovered/Not Resolved]
  - Injection site erythema [Not Recovered/Not Resolved]
  - Pruritus [Recovered/Resolved]
  - Injection site swelling [Not Recovered/Not Resolved]

NARRATIVE: CASE EVENT DATE: 2018
